FAERS Safety Report 17298341 (Version 1)
Quarter: 2020Q1

REPORT INFORMATION
  Report Type: Spontaneous
  Country: US (occurrence: US)
  Receive Date: 20200122
  Receipt Date: 20200122
  Transmission Date: 20200409
  Serious: Yes (Congenital Anomaly)
  Sender: FDA-Public Use
  Company Number: US-VISTAPHARM, INC.-VER202001-000114

PATIENT

DRUGS (2)
  1. LEVETIRACETAM. [Suspect]
     Active Substance: LEVETIRACETAM
     Dosage: UNKNOWN
     Route: 064
  2. PHENYTOIN. [Suspect]
     Active Substance: PHENYTOIN
     Dosage: UNKNOWN
     Route: 064

REACTIONS (3)
  - Adrenogenital syndrome [Not Recovered/Not Resolved]
  - Foetal exposure during pregnancy [Unknown]
  - Arnold-Chiari malformation [Not Recovered/Not Resolved]
